FAERS Safety Report 24855817 (Version 2)
Quarter: 2025Q2

REPORT INFORMATION
  Report Type: Spontaneous
  Country: CN (occurrence: CN)
  Receive Date: 20250117
  Receipt Date: 20250609
  Transmission Date: 20250716
  Serious: Yes (Hospitalization)
  Sender: RANBAXY
  Company Number: CN-SUN PHARMACEUTICAL INDUSTRIES LTD-2025R1-488440

PATIENT
  Age: 26 Year
  Sex: Male
  Weight: 48.5 kg

DRUGS (5)
  1. PALIPERIDONE [Suspect]
     Active Substance: PALIPERIDONE
     Indication: Schizophrenia
     Dosage: 3 MILLIGRAM, QD
     Route: 048
     Dates: start: 20241203, end: 20241206
  2. PALIPERIDONE [Suspect]
     Active Substance: PALIPERIDONE
     Dosage: 3 MILLIGRAM, QD
     Route: 048
     Dates: start: 20241212, end: 20241220
  3. PALIPERIDONE [Suspect]
     Active Substance: PALIPERIDONE
     Indication: Schizophrenia
     Dosage: 6 MILLIGRAM, QD
     Route: 048
     Dates: start: 20241206, end: 20241220
  4. PALIPERIDONE [Suspect]
     Active Substance: PALIPERIDONE
     Dosage: 12 MILLIGRAM, QD
     Route: 048
     Dates: start: 20241220, end: 20241225
  5. QUETIAPINE FUMARATE [Suspect]
     Active Substance: QUETIAPINE FUMARATE
     Indication: Sleep disorder
     Dosage: 0.1 MILLIGRAM, QD
     Route: 048
     Dates: start: 20241223, end: 20241226

REACTIONS (2)
  - Extrapyramidal disorder [Recovering/Resolving]
  - Somnolence [Recovering/Resolving]

NARRATIVE: CASE EVENT DATE: 20241223
